FAERS Safety Report 5387753-3 (Version None)
Quarter: 2007Q3

REPORT INFORMATION
  Report Type: 
  Country: None (occurrence: None)
  Receive Date: 20070716
  Receipt Date: 20070706
  Transmission Date: 20080115
  Serious: Yes (Other)
  Sender: FDA-Public Use
  Company Number: B0479096A

PATIENT
  Age: 35 Year
  Sex: Male
  Weight: 128 kg

DRUGS (1)
  1. SEROXAT [Suspect]
     Indication: PANIC ATTACK
     Dosage: 20MG TWICE PER DAY
     Route: 048
     Dates: start: 20010101

REACTIONS (10)
  - AGITATION [None]
  - ANXIETY [None]
  - DIZZINESS [None]
  - EMOTIONAL DISORDER [None]
  - HEADACHE [None]
  - LETHARGY [None]
  - NAUSEA [None]
  - PSYCHOMOTOR HYPERACTIVITY [None]
  - SUICIDAL IDEATION [None]
  - WEIGHT INCREASED [None]
